FAERS Safety Report 4441817-7 (Version None)
Quarter: 2004Q3

REPORT INFORMATION
  Report Type: 
  Country: None (occurrence: None)
  Receive Date: 20040901
  Receipt Date: 20040817
  Transmission Date: 20050211
  Serious: Yes (Hospitalization)
  Sender: FDA-Public Use
  Company Number: 03P-087-0236236-00

PATIENT
  Age: 37 Year
  Sex: Male

DRUGS (12)
  1. KALETRA [Suspect]
     Indication: HIV INFECTION
     Dosage: 6 CAPSULE, 1 IN 1 D, PER ORAL
     Route: 048
     Dates: start: 20020805, end: 20030728
  2. BIAXIN [Suspect]
     Indication: MYCOBACTERIUM AVIUM COMPLEX INFECTION
     Dosage: 1.2 GM, 1 IN 1 D, PER ORAL
     Route: 048
     Dates: start: 20020723, end: 20020725
  3. LAMUVIDINE [Suspect]
     Indication: HIV INFECTION
     Dosage: 300 MG, 1 IN 1 D, PER ORAL
     Route: 048
     Dates: start: 20020805, end: 20030702
  4. STAVUDINE [Suspect]
     Indication: HIV INFECTION
     Dosage: 60 MG, 1 IN 1 D, PER ORAL
     Route: 048
     Dates: start: 20020805, end: 20030702
  5. ZIDOVUDINE W/LAMIVUDINE [Suspect]
     Indication: HIV INFECTION
     Dosage: 2 DOSAGE FORMS, 1 IN 1 D, PER ORAL
     Route: 048
     Dates: start: 20030703, end: 20030713
  6. ABACAVIR [Suspect]
     Indication: HIV INFECTION
     Dosage: 600 MG, 1 IN 1 D, PER ORAL
     Route: 048
     Dates: start: 20030714, end: 20030728
  7. AZITHROMYCIN [Concomitant]
  8. ETHAMBUTOL HCL [Concomitant]
  9. SPARFLOXACIN [Concomitant]
  10. HYDROCORTISONE [Concomitant]
  11. PREDNISOLONE [Concomitant]
  12. GANCICLOVIR [Concomitant]

REACTIONS (13)
  - ALANINE AMINOTRANSFERASE INCREASED [None]
  - ASPARTATE AMINOTRANSFERASE INCREASED [None]
  - ATYPICAL MYCOBACTERIAL INFECTION [None]
  - BACTERAEMIA [None]
  - BODY TEMPERATURE INCREASED [None]
  - CENTRAL NERVOUS SYSTEM LYMPHOMA [None]
  - CEREBRAL TOXOPLASMOSIS [None]
  - CYTOMEGALOVIRUS CHORIORETINITIS [None]
  - DISEASE RECURRENCE [None]
  - HEPATIC FUNCTION ABNORMAL [None]
  - HYPERLIPIDAEMIA [None]
  - IMMUNE RECONSTITUTION SYNDROME [None]
  - LEUKOPENIA [None]
